FAERS Safety Report 5663916-4 (Version None)
Quarter: 2008Q1

REPORT INFORMATION
  Report Type: 
  Country: None (occurrence: None)
  Receive Date: 20080311
  Receipt Date: 20080228
  Transmission Date: 20080703
  Serious: Yes (Hospitalization)
  Sender: FDA-Public Use
  Company Number: CIP08000337

PATIENT
  Age: 66 Year
  Sex: Female

DRUGS (3)
  1. RISEDRONATE SODIUM [Suspect]
     Indication: OSTEOPOROSIS
     Dosage: 17.5 MG ONCE WEEKLY, ORAL
     Route: 048
     Dates: start: 20071101, end: 20071218
  2. DRUG NOS [Concomitant]
  3. REBETOL [Concomitant]

REACTIONS (3)
  - DIALYSIS [None]
  - LIVER DISORDER [None]
  - NEPHRITIS INTERSTITIAL [None]
